FAERS Safety Report 15953405 (Version 1)
Quarter: 2019Q1

REPORT INFORMATION
  Report Type: Spontaneous
  Country: GB (occurrence: GB)
  Receive Date: 20190212
  Receipt Date: 20190212
  Transmission Date: 20190417
  Serious: Yes (Other)
  Sender: FDA-Public Use
  Company Number: GB-ASTRAZENECA-2019SE20528

PATIENT
  Age: 61 Year
  Sex: Male
  Weight: 88 kg

DRUGS (11)
  1. METFORMIN [Concomitant]
     Active Substance: METFORMIN HYDROCHLORIDE
     Dosage: WITH OR AFTER EVENING MEAL
     Dates: start: 20180917
  2. LANSOPRAZOLE. [Concomitant]
     Active Substance: LANSOPRAZOLE
     Dates: start: 20180406
  3. ATENOLOL. [Concomitant]
     Active Substance: ATENOLOL
     Dates: start: 20171116
  4. PIOGLITAZONE. [Concomitant]
     Active Substance: PIOGLITAZONE
     Dates: start: 20180927
  5. SILDENAFIL. [Concomitant]
     Active Substance: SILDENAFIL
     Dosage: USE AS DIRECTED
     Dates: start: 20171116
  6. ATORVASTATIN [Concomitant]
     Active Substance: ATORVASTATIN
     Dates: start: 20171116
  7. CODEINE PHOSPHATE [Concomitant]
     Active Substance: CODEINE PHOSPHATE
     Indication: PAIN
     Dosage: TAKE ONE TO TWO EVERY FOUR HOURS.
     Dates: start: 20171116
  8. LIXISENATIDE [Concomitant]
     Active Substance: LIXISENATIDE
     Dosage: USE AS INSTRUCTED20UG/INHAL DAILY
     Dates: start: 20181115
  9. PARACETAMOL [Concomitant]
     Active Substance: ACETAMINOPHEN
     Dosage: 1 OR 2 AS REQUIRED FOUR TIMES A DAY
     Dates: start: 20171116
  10. DAPAGLIFLOZIN. [Suspect]
     Active Substance: DAPAGLIFLOZIN
     Dosage: 10.0MG UNKNOWN
     Route: 048
     Dates: start: 20150216, end: 20180827
  11. LOSARTAN. [Concomitant]
     Active Substance: LOSARTAN
     Dates: start: 20171116

REACTIONS (3)
  - Diabetic ketoacidosis [Recovered/Resolved]
  - Diarrhoea [Unknown]
  - Vomiting [Unknown]

NARRATIVE: CASE EVENT DATE: 20180827
